FAERS Safety Report 25849343 (Version 1)
Quarter: 2025Q3

REPORT INFORMATION
  Report Type: Report from Study
  Country: EU (occurrence: EU)
  Receive Date: 20250925
  Receipt Date: 20250925
  Transmission Date: 20251020
  Serious: Yes (Hospitalization)
  Sender: EMD SERONO INC
  Company Number: None

PATIENT
  Age: 35 Year
  Sex: Female

DRUGS (3)
  1. GONAL-F [Suspect]
     Active Substance: FOLLITROPIN
     Indication: Management of reproduction
     Dates: start: 20250306, end: 20250308
  2. HAVRIX JUNIOR [Suspect]
     Active Substance: HEPATITIS A VACCINE, INACTIVATED
     Indication: Hepatitis A immunisation
     Dates: start: 20250306, end: 20250306
  3. HBVAXPRO [Suspect]
     Active Substance: HEPATITIS B VIRUS VACCINE
     Indication: Hepatitis B immunisation
     Dates: start: 20250306, end: 20250306

REACTIONS (2)
  - Hepatocellular injury [Recovered/Resolved]
  - Hyperbilirubinaemia [Recovered/Resolved]

NARRATIVE: CASE EVENT DATE: 20250308
